FAERS Safety Report 15588182 (Version 3)
Quarter: 2018Q4

REPORT INFORMATION
  Report Type: Report from Study
  Country: US (occurrence: US)
  Receive Date: 20181105
  Receipt Date: 20181220
  Transmission Date: 20190205
  Serious: Yes (Hospitalization, Other)
  Sender: FDA-Public Use
  Company Number: US-SEATTLE GENETICS-2018SGN02752

PATIENT
  Age: 60 Year
  Sex: Male

DRUGS (24)
  1. BRENTUXIMAB VEDOTIN [Suspect]
     Active Substance: BRENTUXIMAB VEDOTIN
     Indication: HODGKIN^S DISEASE
     Dosage: 1.2 MG/KG, ON DAYS 1 AND 15 FOR A 28 DAY CYCLE
     Route: 042
     Dates: start: 20180921
  2. ATRIPLA [Concomitant]
     Active Substance: EFAVIRENZ\EMTRICITABINE\TENOFOVIR DISOPROXIL FUMARATE
     Dosage: 1 DF, QD
     Route: 048
  3. PREDNISONE. [Concomitant]
     Active Substance: PREDNISONE
     Dosage: 1 DF, QD FOR 90 DAYS
     Route: 048
  4. DOXORUBICIN [Suspect]
     Active Substance: DOXORUBICIN
     Indication: HODGKIN^S DISEASE
     Dosage: 25 MG/M2, ON DAYS 1 AND 15 FOR A 28 DAY CYCLE
     Route: 042
     Dates: start: 20180921
  5. DACARBAZINE. [Suspect]
     Active Substance: DACARBAZINE
     Indication: HODGKIN^S DISEASE
     Dosage: 375 MG/M2, ON DAYS 1 AND 15 FOR A 28 DAY CYCLE
     Route: 065
     Dates: start: 20180921
  6. CLONAZEPAM. [Concomitant]
     Active Substance: CLONAZEPAM
     Dosage: 1 DF, BID PRN FOR 30 DAYS
     Route: 048
  7. DEXAMETHASONE. [Concomitant]
     Active Substance: DEXAMETHASONE
     Dosage: 2 DF, BID, DAY 2, 3 + 4 AND DAYS 16, 17 + 18 OF EACH CHEMOTHERAPY CYCLE
     Route: 048
  8. MAALOX ADVANCED                    /00416501/ [Concomitant]
     Dosage: MIX WITH VISCOUS LIDOCAINE AND BENADRYL, 5-10 MILS SWISH AND SWALLOW BEFORE MEALS AND BEDTIME
  9. BENADRYL [Concomitant]
     Active Substance: DIPHENHYDRAMINE HYDROCHLORIDE
     Dosage: MIX WITH MAALOX AND VISCOUS LIDOCAINE, 5-10 MILS SWISH AND SWALLOW BEFORE MEALS AND BEDTIME
  10. ASPIRIN 81 [Concomitant]
     Active Substance: ASPIRIN
     Dosage: 1 DF, UNK
     Route: 048
  11. BIKTARVY [Concomitant]
     Active Substance: BICTEGRAVIR SODIUM\EMTRICITABINE\TENOFOVIR ALAFENAMIDE FUMARATE
     Dosage: 1 DF, QD
     Route: 048
  12. LIDOCAINE/PRILOCAINE [Concomitant]
     Active Substance: LIDOCAINE\PRILOCAINE
     Dosage: APPLY TO PORT SITE AND COVER 30-45 MINUTES PRIOR TO NEEDLE ACCESS
  13. BUSPIRONE [Concomitant]
     Active Substance: BUSPIRONE HYDROCHLORIDE
     Dosage: 1 DF, BID
     Route: 048
  14. OXYCODONE AND ACETAMINOPHEN [Concomitant]
     Active Substance: ACETAMINOPHEN\OXYCODONE HYDROCHLORIDE
     Dosage: FROM SURGERY USING PRN
  15. CLOPIDOGREL [Concomitant]
     Active Substance: CLOPIDOGREL BISULFATE
     Dosage: 1 DF, QD
     Route: 048
  16. IPRATROPIUM/ALBUTEROL [Concomitant]
     Active Substance: ALBUTEROL\IPRATROPIUM
     Dosage: 1 VIAL, 1-2 TIMES, QD
  17. ONDANSETRON [Concomitant]
     Active Substance: ONDANSETRON
     Dosage: 1 DF, Q8HR BY TRANSLINUAL ROUTE FOR 30 DAYS
  18. PANTOPRAZOLE [Concomitant]
     Active Substance: PANTOPRAZOLE
  19. VINBLASTINE [Suspect]
     Active Substance: VINBLASTINE
     Indication: HODGKIN^S DISEASE
     Dosage: 6 MG/M2, ON DAYS 1 AND 15 FOR A 28 DAY CYCLE
     Route: 065
     Dates: start: 20180921
  20. ATORVASTATIN [Concomitant]
     Active Substance: ATORVASTATIN
     Dosage: 1 DF, AT BEDTIME
     Route: 048
  21. COMPAZINE                          /00013302/ [Concomitant]
     Active Substance: PROCHLORPERAZINE EDISYLATE
     Indication: NAUSEA
     Dosage: 1 DF, Q6HR PRN
     Route: 048
  22. DILTIAZEM CD [Concomitant]
     Active Substance: DILTIAZEM
     Dosage: 1 DF, QD
     Route: 048
  23. NITROSTAT [Concomitant]
     Active Substance: NITROGLYCERIN
     Dosage: 1 DF, PRN
     Route: 060
  24. LIDOCAINE VISCOUS [Concomitant]
     Active Substance: LIDOCAINE HYDROCHLORIDE
     Dosage: MIX WITH MAALOX AND BENADRYL, 5-10 MILS SWISH AND SWALLOW BEFORE MEALS AND BEDTIME

REACTIONS (16)
  - Respiratory failure [Unknown]
  - Malaise [Unknown]
  - Pyrexia [Unknown]
  - Febrile neutropenia [Unknown]
  - Pneumonia [Unknown]
  - Acute hepatic failure [Unknown]
  - Chills [Unknown]
  - Hypotension [Unknown]
  - Hospitalisation [Unknown]
  - Acute kidney injury [Unknown]
  - Malnutrition [Unknown]
  - Coma [Unknown]
  - Dyspnoea [Unknown]
  - Fatigue [Unknown]
  - Decreased appetite [Unknown]
  - Septic shock [Unknown]

NARRATIVE: CASE EVENT DATE: 20181014
